FAERS Safety Report 8451061-4 (Version None)
Quarter: 2012Q2

REPORT INFORMATION
  Report Type: 
  Country: None (occurrence: None)
  Receive Date: 20120613
  Receipt Date: 20120529
  Transmission Date: 20120825
  Serious: Yes (Death)
  Sender: FDA-Public Use
  Company Number: B0805305A

PATIENT
  Sex: 0

DRUGS (3)
  1. PALIFERMIN (FORMULATION UNKNOWN) (PALIFERMIN) [Suspect]
     Indication: MULTIPLE MYELOMA
     Dosage: 60 MCG/KG/PER DAY/INTRAVENOUS
     Route: 042
  2. FILGRASTIM (FORMULATION UNKNOWN) (FILGRASTIM) [Suspect]
     Dosage: 5 MCG/KG/PER DAY/SUBCUTANEOUS
     Route: 058
  3. MELPHALAN HYDROCHLORIDE [Suspect]
     Indication: MULTIPLE MYELOMA
     Dosage: 200 MG/M2

REACTIONS (4)
  - TOXICITY TO VARIOUS AGENTS [None]
  - MULTI-ORGAN FAILURE [None]
  - TRANSPLANT FAILURE [None]
  - INFECTION [None]
